FAERS Safety Report 9503314 (Version 1)
Quarter: 2013Q1

REPORT INFORMATION
  Report Type: Spontaneous
  Country: US (occurrence: None)
  Receive Date: 20130225
  Receipt Date: 20130225
  Transmission Date: 20140127
  Serious: Yes (Other)
  Sender: FDA-Public Use
  Company Number: 369460

PATIENT
  Age: 51 Year
  Sex: Male
  Weight: 115 kg

DRUGS (7)
  1. VICTOZA [Suspect]
     Indication: TYPE 2 DIABETES MELLITUS
     Route: 058
     Dates: start: 20121026, end: 20130109
  2. METFORMIN (METFORMIN) [Concomitant]
  3. DIOVAN (VALSARTAN) [Concomitant]
  4. LOVAZA (OMEGA-3-ACID ETHYL ESTER) [Concomitant]
  5. TRILIPIX (CHOLINE FENOFIBRATE) [Concomitant]
  6. SIMVASTATIN (SIMVASTATIN) [Concomitant]
  7. AMBIEN (ZOLPIDEM TARTRATE) [Concomitant]

REACTIONS (2)
  - Pancreatitis [None]
  - Influenza [None]
